FAERS Safety Report 6649176-6 (Version None)
Quarter: 2010Q1

REPORT INFORMATION
  Report Type: 
  Country: None (occurrence: None)
  Receive Date: 20100324
  Receipt Date: 20100315
  Transmission Date: 20100710
  Serious: Yes (Other)
  Sender: FDA-Public Use
  Company Number: B0599985A

PATIENT
  Age: 37 Year
  Sex: Male

DRUGS (6)
  1. FLUTIDE DISKUS [Suspect]
     Indication: ASTHMA
     Dosage: 400MCG THREE TIMES PER DAY
     Route: 055
  2. NORVIR [Concomitant]
     Indication: HIV INFECTION
     Route: 048
  3. TRUVADA [Concomitant]
     Indication: HIV INFECTION
     Route: 048
  4. KALETRA [Concomitant]
     Indication: HIV INFECTION
     Route: 048
  5. PREZISTA [Concomitant]
     Indication: DRUG USE FOR UNKNOWN INDICATION
     Route: 048
  6. ISENTRESS [Concomitant]
     Indication: DRUG USE FOR UNKNOWN INDICATION
     Route: 048

REACTIONS (1)
  - ADRENAL DISORDER [None]
